FAERS Safety Report 15744677 (Version 6)
Quarter: 2020Q4

REPORT INFORMATION
  Report Type: Spontaneous
  Country: US (occurrence: US)
  Receive Date: 20181220
  Receipt Date: 20201110
  Transmission Date: 20210113
  Serious: Yes (Hospitalization)
  Sender: FDA-Public Use
  Company Number: US-STRONGBRIDGE BIOPHARMA-2018-STR-000414

PATIENT
  Age: 56 Year
  Sex: Female

DRUGS (4)
  1. KEVEYIS [Suspect]
     Active Substance: DICHLORPHENAMIDE
     Indication: FAMILIAL PERIODIC PARALYSIS
     Dosage: 100 MG, BID
     Route: 048
  2. KEVEYIS [Suspect]
     Active Substance: DICHLORPHENAMIDE
     Dosage: 50 MG TWICE DAILY
     Dates: start: 20181221
  3. KEVEYIS [Suspect]
     Active Substance: DICHLORPHENAMIDE
     Dosage: 50 MG, QD
     Route: 048
     Dates: start: 20181205
  4. KEVEYIS [Suspect]
     Active Substance: DICHLORPHENAMIDE
     Dosage: 50 MG TWICE DAILY
     Dates: start: 20181221

REACTIONS (15)
  - Rectal haemorrhage [Not Recovered/Not Resolved]
  - Paraesthesia [Not Recovered/Not Resolved]
  - Haemoglobin decreased [Unknown]
  - Asthenia [Recovering/Resolving]
  - Diarrhoea haemorrhagic [Recovering/Resolving]
  - Oropharyngeal pain [Recovering/Resolving]
  - Therapeutic response unexpected [Unknown]
  - Haemoglobin decreased [Recovering/Resolving]
  - Ear discomfort [Recovering/Resolving]
  - Cough [Recovering/Resolving]
  - Anaemia [Unknown]
  - Taste disorder [Not Recovered/Not Resolved]
  - Muscle spasms [Recovering/Resolving]
  - Polyuria [Not Recovered/Not Resolved]
  - Nasopharyngitis [Not Recovered/Not Resolved]

NARRATIVE: CASE EVENT DATE: 201812
